FAERS Safety Report 23791720 (Version 2)
Quarter: 2024Q3

REPORT INFORMATION
  Report Type: Spontaneous
  Country: US (occurrence: US)
  Receive Date: 20240429
  Receipt Date: 20240810
  Transmission Date: 20241017
  Serious: No
  Sender: SANOFI AVENTIS
  Company Number: US-SA-SAC20240420000377

PATIENT
  Sex: Female

DRUGS (1)
  1. DUPIXENT [Suspect]
     Active Substance: DUPILUMAB
     Indication: Dermatitis atopic
     Dosage: 300 MG, QOW
     Route: 058
     Dates: start: 20231012

REACTIONS (6)
  - Rash [Unknown]
  - Pain of skin [Unknown]
  - Skin discomfort [Unknown]
  - Drug ineffective [Unknown]
  - Product dose omission in error [Unknown]
  - Exposure during pregnancy [Unknown]
